FAERS Safety Report 4269572-4 (Version None)
Quarter: 2004Q1

REPORT INFORMATION
  Report Type: 
  Country: None (occurrence: None)
  Receive Date: 20040109
  Receipt Date: 20031230
  Transmission Date: 20041129
  Serious: Yes (Life-Threatening, Hospitalization, Other)
  Sender: FDA-Public Use
  Company Number: CA-JNJFOC-20031000956

PATIENT
  Age: 69 Year
  Sex: Female

DRUGS (14)
  1. REMICADE [Suspect]
     Indication: RHEUMATOID ARTHRITIS
     Dosage: SEE IMAGE
     Dates: start: 20031001
  2. HUMALOG [Concomitant]
  3. NPH INSULIN [Concomitant]
  4. FOSAMAX [Concomitant]
  5. DILTIAZEM [Concomitant]
  6. PREDNISONE [Concomitant]
  7. AVAPRO [Concomitant]
  8. CALCIUM (CALCIUM) [Concomitant]
  9. VITAMIN D [Concomitant]
  10. IRON (IRON) [Concomitant]
  11. COUMADIN [Concomitant]
  12. NORVASC [Concomitant]
  13. LOSEC [Concomitant]
  14. PROSOR (ALL OTHER THERAPEUTIC PRODUCTS) [Concomitant]

REACTIONS (8)
  - DYSPNOEA [None]
  - EXTREMITY NECROSIS [None]
  - FUNGAL INFECTION [None]
  - NASOPHARYNGITIS [None]
  - OXYGEN SATURATION DECREASED [None]
  - PERICARDITIS [None]
  - PULMONARY FIBROSIS [None]
  - SYNCOPE [None]
